FAERS Safety Report 8575316-8 (Version None)
Quarter: 2012Q3

REPORT INFORMATION
  Report Type: 
  Country: None (occurrence: None)
  Receive Date: 20120807
  Receipt Date: 20120804
  Transmission Date: 20120928
  Serious: No
  Sender: FDA-Public Use
  Company Number: US-PFIZER INC-2012189488

PATIENT
  Sex: Male

DRUGS (1)
  1. NORVASC [Suspect]
     Indication: HYPERTENSION
     Dosage: UNK

REACTIONS (5)
  - URTICARIA [None]
  - HYPOTENSION [None]
  - CHILLS [None]
  - PYREXIA [None]
  - MUSCLE SPASMS [None]
